FAERS Safety Report 9838659 (Version 1)
Quarter: 2014Q1

REPORT INFORMATION
  Report Type: Spontaneous
  Country: GB (occurrence: GB)
  Receive Date: 20140123
  Receipt Date: 20140123
  Transmission Date: 20141002
  Serious: Yes (Disabling)
  Sender: FDA-Public Use
  Company Number: GB-TEVA-457809ISR

PATIENT
  Age: 61 Year
  Sex: Female
  Weight: 68 kg

DRUGS (5)
  1. FENOFIBRATE [Suspect]
     Indication: HYPERLIPIDAEMIA
     Route: 048
     Dates: start: 20121004, end: 20130723
  2. CANDESARTAN [Concomitant]
     Dosage: REPEAT
  3. PARACETAMOL [Concomitant]
     Dosage: TAKE 1-2 WHEN REQUIRED FOUR TIMES DAILY
  4. ATORVASTATIN [Concomitant]
  5. CO-CODAMOL [Concomitant]
     Dosage: 8MG/500MG. 1-2 WHEN REQUIRED FOUR TIMES DAILY.

REACTIONS (4)
  - Fatigue [Recovered/Resolved]
  - Asthenia [Recovered/Resolved]
  - Blood creatinine increased [Recovered/Resolved]
  - Tubulointerstitial nephritis [Recovered/Resolved]
